FAERS Safety Report 25309230 (Version 4)
Quarter: 2025Q4

REPORT INFORMATION
  Report Type: Spontaneous
  Country: US (occurrence: US)
  Receive Date: 20250513
  Receipt Date: 20251203
  Transmission Date: 20260117
  Serious: Yes (Hospitalization)
  Sender: BRISTOL-MYERS SQUIBB COMPANY
  Company Number: US-BRISTOL-MYERS SQUIBB COMPANY-2025-067033

PATIENT
  Age: 56 Year
  Sex: Female

DRUGS (6)
  1. ORENCIA [Suspect]
     Active Substance: ABATACEPT
     Indication: Rheumatoid arthritis
     Route: 058
     Dates: start: 202408
  2. ORENCIA [Suspect]
     Active Substance: ABATACEPT
     Indication: Dermatitis atopic
     Dosage: CODE UNIT: 125 MG/ML
     Route: 058
     Dates: start: 202408
  3. ORENCIA [Suspect]
     Active Substance: ABATACEPT
     Indication: Migraine with aura
     Route: 058
     Dates: start: 202408
  4. DUPIXENT [Suspect]
     Active Substance: DUPILUMAB
     Indication: Dermatitis atopic
     Dosage: PEN; MAINTENANCE DOSE
  5. DUPIXENT [Suspect]
     Active Substance: DUPILUMAB
     Indication: Migraine with aura
  6. DUPIXENT [Suspect]
     Active Substance: DUPILUMAB
     Indication: Rheumatoid arthritis

REACTIONS (5)
  - Rheumatoid arthritis [Unknown]
  - Back disorder [Unknown]
  - Pruritus [Unknown]
  - Skin fissures [Unknown]
  - Rash [Unknown]
